FAERS Safety Report 6993363-4 (Version None)
Quarter: 2010Q3

REPORT INFORMATION
  Report Type: 
  Country: None (occurrence: None)
  Receive Date: 20100917
  Receipt Date: 20100112
  Transmission Date: 20110219
  Serious: Yes (Hospitalization)
  Sender: FDA-Public Use
  Company Number: US-ASTRAZENECA-2009UW20727

PATIENT
  Age: 57 Year
  Sex: Female
  Weight: 66.2 kg

DRUGS (5)
  1. SEROQUEL [Suspect]
     Indication: POST-TRAUMATIC STRESS DISORDER
     Dosage: 25-100 MG
     Route: 048
     Dates: start: 19970101
  2. SEROQUEL [Suspect]
     Indication: DEPRESSION
     Dosage: 25-100 MG
     Route: 048
     Dates: start: 19970101
  3. TRILAFON [Concomitant]
     Dates: start: 19700101
  4. ELEVIL [Concomitant]
     Dates: start: 19700101, end: 19800101
  5. VALIUM [Concomitant]
     Dates: start: 19700101, end: 19800101

REACTIONS (7)
  - ANGIOPATHY [None]
  - BLOOD CHOLESTEROL INCREASED [None]
  - BLOOD TRIGLYCERIDES INCREASED [None]
  - CARDIAC DISORDER [None]
  - HYPERLIPIDAEMIA [None]
  - PNEUMOCYSTIS JIROVECI PNEUMONIA [None]
  - TYPE 2 DIABETES MELLITUS [None]
